FAERS Safety Report 9312339 (Version 2)
Quarter: 2013Q2

REPORT INFORMATION
  Report Type: Spontaneous
  Country: DE (occurrence: None)
  Receive Date: 20130513
  Receipt Date: 20130516
  Transmission Date: 20140414
  Serious: Yes (Death, Hospitalization)
  Sender: FDA-Public Use
  Company Number: 2013035875

PATIENT
  Age: 62 Year
  Sex: Male

DRUGS (6)
  1. PRIVIGEN (IMMUNE GLOBULIN INTRAVENOUS (HUMAN) 10% LIQUID) [Suspect]
     Indication: CHRONIC LYMPHOCYTIC LEUKAEMIA
     Dosage: 30 G, INFUSION RATE: MINIMUN: 0.25 ML/MIN, MAXIMUM: 1,6 ML/MIN,?4 HOURS  5 MINS
     Dates: start: 20130214, end: 20130214
  2. GLUCOCORTICOIDS(GLUCOCORTICOIDS) [Concomitant]
  3. VIRUSTAT(MOROXYDINE HYDROCHLORIDE [Concomitant]
  4. ANTIBIOTICS(ANTIBIOTICS) [Concomitant]
  5. PANTOPRAZOLE(PANTOPRAZOLE) [Concomitant]
  6. PANKREATIN(PANCREATIN) [Concomitant]

REACTIONS (1)
  - Richter^s syndrome [None]
